FAERS Safety Report 7121288-2 (Version None)
Quarter: 2010Q4

REPORT INFORMATION
  Report Type: 
  Country: None (occurrence: None)
  Receive Date: 20101124
  Receipt Date: 20101118
  Transmission Date: 20110411
  Serious: Yes (Other)
  Sender: FDA-Public Use
  Company Number: US-SANOFI-AVENTIS-2010SA034120

PATIENT
  Age: 80 Year
  Sex: Female

DRUGS (3)
  1. LANTUS [Suspect]
     Route: 058
  2. OPTICLICK [Suspect]
  3. NOVOLOG [Concomitant]

REACTIONS (2)
  - BLINDNESS [None]
  - INJECTION SITE HAEMATOMA [None]
